FAERS Safety Report 9028386 (Version 6)
Quarter: 2013Q4

REPORT INFORMATION
  Report Type: Spontaneous
  Country: US (occurrence: US)
  Receive Date: 20130124
  Receipt Date: 20131028
  Transmission Date: 20140711
  Serious: Yes (Death, Hospitalization)
  Sender: FDA-Public Use
  Company Number: US-ASTELLAS-2013US000768

PATIENT
  Age: 69 Year
  Sex: Male
  Weight: 81 kg

DRUGS (12)
  1. XTANDI [Suspect]
     Indication: PROSTATE CANCER
     Dosage: 160 MG, UID/QD
     Route: 048
     Dates: start: 20121115, end: 20130319
  2. HYDROCORTISONE [Concomitant]
     Indication: INFECTION
     Dosage: 400 MG, UNKNOWN/D
     Route: 042
     Dates: end: 20130218
  3. LEVAQUIN [Concomitant]
     Indication: INFECTION
     Dosage: UNK
     Route: 065
     Dates: start: 20130204, end: 20130218
  4. TENORMIN [Concomitant]
     Indication: HYPERTENSION
     Dosage: 75 MG, UID/QD
     Route: 048
     Dates: end: 20130218
  5. DITROPAN [Concomitant]
     Indication: BLADDER DISORDER
     Dosage: 5 MG, UID/QD
     Route: 048
     Dates: end: 20130218
  6. MS CONTIN [Concomitant]
     Indication: PAIN
     Dosage: 60 MG, UID/QD
     Route: 048
     Dates: end: 20130218
  7. MAGNESIUM OXIDE [Concomitant]
     Indication: BLOOD MAGNESIUM DECREASED
     Dosage: 400 MG, UID/QD
     Route: 048
     Dates: end: 20130218
  8. ATIVAN [Concomitant]
     Indication: ANXIETY
     Dosage: 0.5 MG, PRN
     Route: 048
     Dates: end: 20130218
  9. NEXIUM                             /01479302/ [Concomitant]
     Indication: GASTROOESOPHAGEAL REFLUX DISEASE
     Dosage: 40 MG, UID/QD
     Route: 048
     Dates: end: 20130218
  10. TAMSULOSIN [Concomitant]
     Indication: PROSTATOMEGALY
     Dosage: 4 MG, UID/QD
     Route: 048
     Dates: end: 20130218
  11. ZOFRAN                             /00955301/ [Concomitant]
     Indication: NAUSEA
     Dosage: 4 MG, PRN
     Route: 048
     Dates: end: 20130218
  12. PHENERGAN                          /00033001/ [Concomitant]
     Indication: NAUSEA
     Dosage: 12.5 MG, UID/QD
     Route: 048
     Dates: end: 20130218

REACTIONS (14)
  - Fatigue [Unknown]
  - Pulmonary congestion [Unknown]
  - Weight decreased [Unknown]
  - Pain [Unknown]
  - Dehydration [Unknown]
  - Constipation [Recovering/Resolving]
  - Blood culture positive [Unknown]
  - Frequent bowel movements [Unknown]
  - Malignant neoplasm progression [Fatal]
  - Mucosal inflammation [Unknown]
  - Erythema [Unknown]
  - Obstructive uropathy [Unknown]
  - Klebsiella infection [Unknown]
  - Urinary tract infection [Unknown]
